FAERS Safety Report 8196468-8 (Version None)
Quarter: 2012Q1

REPORT INFORMATION
  Report Type: 
  Country: None (occurrence: None)
  Receive Date: 20120309
  Receipt Date: 20120307
  Transmission Date: 20120608
  Serious: Yes (Other)
  Sender: FDA-Public Use
  Company Number: US-PFIZER INC-2012061472

PATIENT
  Sex: Female
  Weight: 45.351 kg

DRUGS (2)
  1. IBUPROFEN (ADVIL) [Suspect]
     Indication: MYALGIA
  2. IBUPROFEN (ADVIL) [Suspect]
     Indication: RIB FRACTURE
     Dosage: 400 MG, 5X/DAY
     Route: 048
     Dates: start: 20120304, end: 20120305

REACTIONS (2)
  - COELIAC DISEASE [None]
  - GASTRIC DISORDER [None]
